FAERS Safety Report 17502052 (Version 5)
Quarter: 2020Q2

REPORT INFORMATION
  Report Type: Report from Study
  Country: DE (occurrence: DE)
  Receive Date: 20200305
  Receipt Date: 20200604
  Transmission Date: 20200713
  Serious: Yes (Other)
  Sender: FDA-Public Use
  Company Number: NVSC2020DE062891

PATIENT
  Sex: Female
  Weight: 72 kg

DRUGS (26)
  1. COSENTYX [Suspect]
     Active Substance: SECUKINUMAB
     Dosage: 150 MG, QD
     Route: 065
     Dates: start: 20160316
  2. COSENTYX [Suspect]
     Active Substance: SECUKINUMAB
     Dosage: 150 UNK
     Route: 065
     Dates: start: 20160511
  3. COSENTYX [Suspect]
     Active Substance: SECUKINUMAB
     Dosage: 150 UNK
     Route: 065
     Dates: start: 20160901
  4. COSENTYX [Suspect]
     Active Substance: SECUKINUMAB
     Dosage: 150 UNK
     Route: 065
     Dates: start: 20161124
  5. COSENTYX [Suspect]
     Active Substance: SECUKINUMAB
     Dosage: 150 UNK
     Route: 065
     Dates: start: 20170119, end: 20170119
  6. COSENTYX [Suspect]
     Active Substance: SECUKINUMAB
     Dosage: 150 UNK
     Route: 065
     Dates: start: 20170316, end: 20170316
  7. COSENTYX [Suspect]
     Active Substance: SECUKINUMAB
     Dosage: 150 MG, QD
     Route: 065
     Dates: start: 20170706, end: 20170706
  8. COSENTYX [Suspect]
     Active Substance: SECUKINUMAB
     Dosage: 150 MG, QD
     Route: 065
     Dates: start: 20160224
  9. COSENTYX [Suspect]
     Active Substance: SECUKINUMAB
     Dosage: 150 UNK
     Route: 065
     Dates: start: 20170608, end: 20170608
  10. NAPROXEN. [Concomitant]
     Active Substance: NAPROXEN
     Indication: PAIN
     Dosage: 250 MG (4 TIMES AS NEEDED)
     Route: 048
  11. COSENTYX [Suspect]
     Active Substance: SECUKINUMAB
     Dosage: 150 UNK
     Route: 065
     Dates: start: 20170216
  12. COPAXONE [Concomitant]
     Active Substance: GLATIRAMER ACETATE
     Indication: MULTIPLE SCLEROSIS
     Dosage: UNK UNK, QW3
     Route: 058
  13. COSENTYX [Suspect]
     Active Substance: SECUKINUMAB
     Dosage: 150 MG, QD
     Route: 065
     Dates: start: 20160309
  14. COSENTYX [Suspect]
     Active Substance: SECUKINUMAB
     Dosage: 150 UNK
     Route: 065
     Dates: start: 20160608
  15. COSENTYX [Suspect]
     Active Substance: SECUKINUMAB
     Dosage: 150 MG, QD
     Route: 065
     Dates: start: 20160803
  16. COSENTYX [Suspect]
     Active Substance: SECUKINUMAB
     Dosage: 150 UNK
     Route: 065
     Dates: start: 20161027
  17. COSENTYX [Suspect]
     Active Substance: SECUKINUMAB
     Dosage: 150 UNK
     Route: 065
     Dates: start: 20170413, end: 20170413
  18. NAPROXEN. [Concomitant]
     Active Substance: NAPROXEN
     Indication: ANALGESIC THERAPY
     Dosage: 0.5 DF, QID (AS NEEDED)
     Route: 048
     Dates: start: 20160108
  19. COSENTYX [Suspect]
     Active Substance: SECUKINUMAB
     Indication: ANKYLOSING SPONDYLITIS
     Dosage: 150 MG (PER APPLICATION)
     Route: 065
     Dates: start: 20160217
  20. COSENTYX [Suspect]
     Active Substance: SECUKINUMAB
     Dosage: 150 MG, QD
     Route: 065
     Dates: start: 20161222
  21. COSENTYX [Suspect]
     Active Substance: SECUKINUMAB
     Dosage: 150 UNK
     Route: 065
     Dates: start: 20160302
  22. COSENTYX [Suspect]
     Active Substance: SECUKINUMAB
     Dosage: 150 UNK
     Route: 065
     Dates: start: 20160413
  23. COSENTYX [Suspect]
     Active Substance: SECUKINUMAB
     Dosage: 150 MG, QD
     Route: 065
     Dates: start: 20160706
  24. COSENTYX [Suspect]
     Active Substance: SECUKINUMAB
     Dosage: 150 UNK
     Route: 065
     Dates: start: 20160929
  25. COSENTYX [Suspect]
     Active Substance: SECUKINUMAB
     Dosage: 150 MG, UNKNOWN
     Route: 065
     Dates: start: 20170511, end: 20170511
  26. ESOMEPRAZOLE. [Concomitant]
     Active Substance: ESOMEPRAZOLE MAGNESIUM
     Indication: GASTRITIS PROPHYLAXIS
     Dosage: UNK, PRN
     Route: 048
     Dates: start: 20151218

REACTIONS (3)
  - Infection susceptibility increased [Recovered/Resolved]
  - Depression [Recovering/Resolving]
  - Abdominal discomfort [Recovered/Resolved]

NARRATIVE: CASE EVENT DATE: 201612
